FAERS Safety Report 14299674 (Version 1)
Quarter: 2017Q4

REPORT INFORMATION
  Report Type: Report from Study
  Country: US (occurrence: US)
  Receive Date: 20171219
  Receipt Date: 20171219
  Transmission Date: 20180321
  Serious: Yes (Other)
  Sender: FDA-Public Use
  Company Number: US-ACCORD-061922

PATIENT
  Age: 53 Year

DRUGS (3)
  1. LEUPRORELIN [Concomitant]
     Active Substance: LEUPROLIDE ACETATE
  2. FLUOROURACIL. [Suspect]
     Active Substance: FLUOROURACIL
     Indication: OESOPHAGEAL CARCINOMA
  3. CISPLATIN. [Suspect]
     Active Substance: CISPLATIN
     Indication: OESOPHAGEAL CARCINOMA

REACTIONS (2)
  - Off label use [Unknown]
  - Anal incontinence [Unknown]
